FAERS Safety Report 17772018 (Version 1)
Quarter: 2020Q2

REPORT INFORMATION
  Report Type: Spontaneous
  Country: US (occurrence: US)
  Receive Date: 20200512
  Receipt Date: 20200512
  Transmission Date: 20200714
  Serious: No
  Sender: FDA-Public Use
  Company Number: US-GLAXOSMITHKLINE-US2020078352

PATIENT
  Age: 33 Year
  Sex: Male

DRUGS (1)
  1. FLONASE [Suspect]
     Active Substance: FLUTICASONE PROPIONATE
     Indication: HYPERSENSITIVITY
     Dosage: UNK
     Dates: start: 20200407

REACTIONS (7)
  - Upper-airway cough syndrome [Unknown]
  - Hypoaesthesia [Unknown]
  - Condition aggravated [Unknown]
  - Chest pain [Unknown]
  - Dyspnoea [Unknown]
  - Suspected COVID-19 [Unknown]
  - Rhinorrhoea [Unknown]

NARRATIVE: CASE EVENT DATE: 20200416
